FAERS Safety Report 13228016 (Version 2)
Quarter: 2017Q1

REPORT INFORMATION
  Report Type: Spontaneous
  Country: US (occurrence: US)
  Receive Date: 20170213
  Receipt Date: 20170214
  Transmission Date: 20170428
  Serious: No
  Sender: FDA-Public Use
  Company Number: US-XTTRIUM LABORATORIES, INC-1063043

PATIENT
  Age: 59 Year
  Sex: Female
  Weight: 65.91 kg

DRUGS (1)
  1. SCRUB CARE EXIDINE-2 CHG [Suspect]
     Active Substance: CHLORHEXIDINE GLUCONATE
     Route: 061

REACTIONS (1)
  - Skin exfoliation [Unknown]
